FAERS Safety Report 16937893 (Version 2)
Quarter: 2019Q4

REPORT INFORMATION
  Report Type: Not Available
  Country: US (occurrence: US)
  Receive Date: 20191018
  Receipt Date: 20191101
  Transmission Date: 20200122
  Serious: Yes (Life-Threatening, Hospitalization)
  Sender: FDA-Public Use
  Company Number: US-NEUROCRINE BIOSCIENCES INC.-2019NBI03042

PATIENT
  Age: 62 Year
  Sex: Male

DRUGS (1)
  1. INGREZZA [Suspect]
     Active Substance: VALBENAZINE
     Indication: PRODUCT USED FOR UNKNOWN INDICATION
     Dates: start: 201906, end: 2019

REACTIONS (5)
  - Head injury [Unknown]
  - Loss of consciousness [Unknown]
  - Loss of consciousness [Unknown]
  - Aggression [Unknown]
  - Dyskinesia [Unknown]

NARRATIVE: CASE EVENT DATE: 20190708
